FAERS Safety Report 13262009 (Version 2)
Quarter: 2019Q4

REPORT INFORMATION
  Report Type: Report from Study
  Country: DE (occurrence: DE)
  Receive Date: 20170222
  Receipt Date: 20191115
  Transmission Date: 20200122
  Serious: Yes (Other)
  Sender: FDA-Public Use
  Company Number: GXKR2016DE003590

PATIENT
  Sex: Female

DRUGS (4)
  1. HYDROCORTICONE [Concomitant]
     Active Substance: HYDROCORTISONE
     Indication: PRODUCT USED FOR UNKNOWN INDICATION
     Dosage: UNK
     Route: 048
     Dates: start: 20150721
  2. OMNITROPE [Suspect]
     Active Substance: SOMATROPIN
     Indication: GROWTH HORMONE DEFICIENCY
     Dosage: 1 DF 95 MG/1.5 ML SOLUTION FOR INJECTION)
     Route: 058
     Dates: start: 20150721
  3. OMNITROPE [Suspect]
     Active Substance: SOMATROPIN
     Dosage: 0.1 MG/DAY
     Route: 065
     Dates: start: 201510, end: 201602
  4. L-THYROXIN [Concomitant]
     Active Substance: LEVOTHYROXINE SODIUM
     Indication: PRODUCT USED FOR UNKNOWN INDICATION
     Dosage: UNK
     Route: 048
     Dates: start: 20150721

REACTIONS (4)
  - Impaired healing [Unknown]
  - Gestational diabetes [Recovered/Resolved]
  - Maternal exposure during pregnancy [Unknown]
  - Normal newborn [Unknown]

NARRATIVE: CASE EVENT DATE: 201607
